FAERS Safety Report 5317887-0 (Version None)
Quarter: 2007Q2

REPORT INFORMATION
  Report Type: 
  Country: None (occurrence: None)
  Receive Date: 20070507
  Receipt Date: 20070503
  Transmission Date: 20071010
  Serious: Yes (Hospitalization)
  Sender: FDA-Public Use
  Company Number: A0535436A

PATIENT
  Age: 14 Year
  Sex: Male
  Weight: 72.7 kg

DRUGS (5)
  1. PAXIL [Suspect]
     Indication: DEPRESSION
     Route: 048
     Dates: start: 20030225
  2. CONCERTA [Concomitant]
     Indication: DRUG USE FOR UNKNOWN INDICATION
     Dosage: 36MG TWICE PER DAY
  3. ALLEGRA [Concomitant]
     Indication: RHINITIS SEASONAL
  4. ALCOHOL [Concomitant]
  5. ALBUTEROL [Concomitant]

REACTIONS (15)
  - ABNORMAL BEHAVIOUR [None]
  - AFFECT LABILITY [None]
  - AGGRESSION [None]
  - AGITATION [None]
  - AKATHISIA [None]
  - ANXIETY [None]
  - DEPERSONALISATION [None]
  - FLAT AFFECT [None]
  - IMPULSIVE BEHAVIOUR [None]
  - PHYSICAL ASSAULT [None]
  - SELF MUTILATION [None]
  - SOCIAL AVOIDANT BEHAVIOUR [None]
  - SUICIDAL IDEATION [None]
  - SUICIDE ATTEMPT [None]
  - TREMOR [None]
